FAERS Safety Report 7612282-3 (Version None)
Quarter: 2011Q3

REPORT INFORMATION
  Report Type: 
  Country: None (occurrence: None)
  Receive Date: 20110715
  Receipt Date: 20110713
  Transmission Date: 20111222
  Serious: Yes (Hospitalization, Disabling)
  Sender: FDA-Public Use
  Company Number: US-MERCK-1107USA01811

PATIENT
  Sex: Female

DRUGS (2)
  1. FOSAMAX [Suspect]
     Route: 048
     Dates: start: 20080101, end: 20110201
  2. FOSAMAX [Suspect]
     Route: 048
     Dates: start: 20060101, end: 20080101

REACTIONS (1)
  - FEMUR FRACTURE [None]
